FAERS Safety Report 5247427-6 (Version None)
Quarter: 2007Q1

REPORT INFORMATION
  Report Type: 
  Country: None (occurrence: None)
  Receive Date: 20070223
  Receipt Date: 20070223
  Transmission Date: 20070707
  Serious: Yes (Hospitalization)
  Sender: FDA-Public Use
  Company Number: None

PATIENT
  Age: 59 Year
  Sex: Male
  Weight: 64.4108 kg

DRUGS (2)
  1. LAMOTRIGINE [Suspect]
     Indication: BIPOLAR DISORDER
     Dosage: 200 MG PO QD
     Route: 048
  2. DIVALPROEX 500 MG EXT. REL. [Suspect]
     Dosage: 2500 MG PO QHS
     Route: 048

REACTIONS (6)
  - COORDINATION ABNORMAL [None]
  - GAIT DISTURBANCE [None]
  - MENTAL STATUS CHANGES [None]
  - SOMNOLENCE [None]
  - SPEECH DISORDER [None]
  - VISUAL DISTURBANCE [None]
